FAERS Safety Report 5439086-4 (Version None)
Quarter: 2007Q3

REPORT INFORMATION
  Report Type: 
  Country: None (occurrence: None)
  Receive Date: 20070831
  Receipt Date: 20070831
  Transmission Date: 20080115
  Serious: Yes (Hospitalization)
  Sender: FDA-Public Use
  Company Number: CA-SANOFI-SYNTHELABO-A01200708683

PATIENT
  Age: 61 Year
  Sex: Male

DRUGS (10)
  1. SOFLAX [Concomitant]
     Route: 048
  2. ALTACE [Concomitant]
     Indication: HYPERTENSION
     Dosage: UNK
     Route: 048
  3. DEXAMETHASONE 0.5MG TAB [Concomitant]
     Route: 048
  4. DEXAMETHASONE 0.5MG TAB [Concomitant]
     Dosage: 12 MG
     Route: 048
  5. ONDANSETRON [Concomitant]
     Route: 048
  6. ONDANSETRON [Concomitant]
     Dosage: 8 MG
     Route: 048
  7. LEUCOVORIN CALCIUM [Concomitant]
     Indication: COLON CANCER
     Route: 042
     Dates: start: 20070711, end: 20070712
  8. FLUOROURACIL [Concomitant]
     Indication: COLON CANCER
     Dosage: 800 MG BOLUS FOLLOWED BY 4800 MG INFUSION OVER 46 HOURS
     Route: 040
     Dates: start: 20070711, end: 20070712
  9. ELOXATIN [Suspect]
     Indication: COLON CANCER
     Route: 042
     Dates: start: 20070711, end: 20070711
  10. PROCHLORPERAZINE [Concomitant]
     Route: 048

REACTIONS (4)
  - ARTERIAL THROMBOSIS LIMB [None]
  - PAIN [None]
  - PERIPHERAL ISCHAEMIA [None]
  - PULSE ABSENT [None]
